FAERS Safety Report 9125151 (Version 1)
Quarter: 2013Q1

REPORT INFORMATION
  Report Type: Report from Study
  Country: US (occurrence: US)
  Receive Date: 20130121
  Receipt Date: 20130121
  Transmission Date: 20140127
  Serious: Yes (Death)
  Sender: FDA-Public Use
  Company Number: US-ACTELION-A-NJ2013-78107

PATIENT
  Age: 50 Year
  Sex: Male

DRUGS (2)
  1. TRACLEER [Suspect]
     Indication: PULMONARY HYPERTENSION
     Route: 048
  2. VENTAVIS [Suspect]
     Indication: PULMONARY HYPERTENSION
     Route: 055

REACTIONS (1)
  - Death [Fatal]
